FAERS Safety Report 15289905 (Version 1)
Quarter: 2018Q3

REPORT INFORMATION
  Report Type: Spontaneous
  Country: US (occurrence: US)
  Receive Date: 20180804
  Receipt Date: 20180804
  Transmission Date: 20181010
  Serious: No
  Sender: FDA-Public Use
  Company Number: None

PATIENT
  Age: 39 Year
  Sex: Female

DRUGS (1)
  1. HUMIRA [Suspect]
     Active Substance: ADALIMUMAB
     Indication: CROHN^S DISEASE
     Route: 058
     Dates: start: 201805

REACTIONS (4)
  - Pain in jaw [None]
  - Pain in extremity [None]
  - Musculoskeletal stiffness [None]
  - Joint stiffness [None]

NARRATIVE: CASE EVENT DATE: 20180520
